FAERS Safety Report 6024836-9 (Version None)
Quarter: 2008Q4

REPORT INFORMATION
  Report Type: 
  Country: None (occurrence: None)
  Receive Date: 20081229
  Receipt Date: 20081216
  Transmission Date: 20090506
  Serious: Yes (Hospitalization)
  Sender: FDA-Public Use
  Company Number: JPI-P-005461

PATIENT
  Age: 18 Year
  Sex: Female

DRUGS (8)
  1. LUVOX [Suspect]
     Indication: DEPRESSION
     Dosage: 50 MG, 1 D, ORAL
     Route: 048
     Dates: start: 20070626, end: 20070717
  2. AMOXAPINE [Suspect]
     Indication: DEPRESSION
     Dosage: 25 MG, 1 D, ORAL
     Dates: start: 20070626, end: 20070717
  3. IRSOGLADINE MALEATE [Suspect]
     Indication: GASTRIC ULCER
     Dosage: 4 MG, 1 D, ORAL
     Route: 048
     Dates: start: 20070626, end: 20070717
  4. FLUDIAZEPAM [Suspect]
     Indication: DEPRESSION
     Dosage: 0.75 MG, 1 D, ORAL
     Route: 048
     Dates: start: 20070626, end: 20070717
  5. FLUNITRAZEPAM [Suspect]
     Indication: DEPRESSION
     Dosage: 1 MG, 1 D, ORAL
     Route: 048
     Dates: start: 20070709, end: 20070717
  6. QUETIAPINE FUMARATE [Suspect]
     Indication: DEPRESSION
     Dosage: 150 MG, 1 D, ORAL
     Route: 048
     Dates: start: 20070709, end: 20070717
  7. ALPRAZOLAM [Suspect]
     Indication: DEPRESSION
     Dosage: 2.4 MG, 1 D, ORAL
     Route: 048
     Dates: start: 20070710, end: 20070717
  8. QUAZEPAM [Suspect]
     Indication: DEPRESSION
     Dosage: 15 MG, 1 D, ORAL
     Route: 048
     Dates: start: 20070626, end: 20070709

REACTIONS (10)
  - ALANINE AMINOTRANSFERASE INCREASED [None]
  - ASPARTATE AMINOTRANSFERASE INCREASED [None]
  - BLISTER [None]
  - BLOOD CHOLINESTERASE DECREASED [None]
  - DRUG ERUPTION [None]
  - ERYTHEMA MULTIFORME [None]
  - HAEMATOCRIT DECREASED [None]
  - HAEMOGLOBIN DECREASED [None]
  - LIP BLISTER [None]
  - PYREXIA [None]
